FAERS Safety Report 5965631-6 (Version None)
Quarter: 2008Q4

REPORT INFORMATION
  Report Type: 
  Country: None (occurrence: None)
  Receive Date: 20081121
  Receipt Date: 20081121
  Transmission Date: 20090506
  Serious: Yes (Other)
  Sender: FDA-Public Use
  Company Number: None

PATIENT
  Age: 60 Year
  Sex: Female
  Weight: 145.151 kg

DRUGS (1)
  1. DEPO-MEDROL [Suspect]
     Indication: ARTHRALGIA
     Dosage: ? ONCE
     Dates: start: 20081027, end: 20081027

REACTIONS (20)
  - ANGINA PECTORIS [None]
  - ARTHRALGIA [None]
  - AURICULAR SWELLING [None]
  - CARDIAC DISORDER [None]
  - CONTUSION [None]
  - DRY EYE [None]
  - DYSGEUSIA [None]
  - EYE SWELLING [None]
  - FEELING ABNORMAL [None]
  - FUNGAL INFECTION [None]
  - GAIT DISTURBANCE [None]
  - HEADACHE [None]
  - HYPOPHAGIA [None]
  - INJECTION SITE PAIN [None]
  - INTESTINAL HAEMORRHAGE [None]
  - MUSCLE DISORDER [None]
  - OTORRHOEA [None]
  - PRURITUS [None]
  - RASH [None]
  - URINARY BLADDER HAEMORRHAGE [None]
